FAERS Safety Report 8519814-1 (Version None)
Quarter: 2012Q3

REPORT INFORMATION
  Report Type: 
  Country: None (occurrence: None)
  Receive Date: 20120719
  Receipt Date: 20120710
  Transmission Date: 20120928
  Serious: No
  Sender: FDA-Public Use
  Company Number: US-BIOGENIDEC-2012BI024810

PATIENT
  Sex: Female

DRUGS (4)
  1. GILENYA [Concomitant]
  2. TYSABRI [Suspect]
     Indication: MULTIPLE SCLEROSIS
     Route: 042
     Dates: start: 20080828, end: 20090325
  3. BETASERON [Concomitant]
  4. TYSABRI [Suspect]
     Route: 042
     Dates: start: 20120319, end: 20120401

REACTIONS (15)
  - CHLOASMA [None]
  - BALANCE DISORDER [None]
  - OPTIC NEURITIS [None]
  - FEELING ABNORMAL [None]
  - HAEMOGLOBIN INCREASED [None]
  - HEART RATE DECREASED [None]
  - PAIN OF SKIN [None]
  - DIABETES MELLITUS [None]
  - VEIN DISORDER [None]
  - COGNITIVE DISORDER [None]
  - MIGRAINE [None]
  - PAIN [None]
  - DEPRESSION [None]
  - RASH PAPULAR [None]
  - ALOPECIA [None]
